FAERS Safety Report 14026114 (Version 1)
Quarter: 2017Q3

REPORT INFORMATION
  Report Type: Spontaneous
  Country: FR (occurrence: FR)
  Receive Date: 20170929
  Receipt Date: 20170929
  Transmission Date: 20171128
  Serious: Yes (Other)
  Sender: FDA-Public Use
  Company Number: PHHY2017FR140819

PATIENT
  Age: 12 Year
  Sex: Male

DRUGS (1)
  1. TEGRETOL [Suspect]
     Active Substance: CARBAMAZEPINE
     Indication: PARTIAL SEIZURES
     Dosage: 200 MG, BID
     Route: 048
     Dates: start: 20170723, end: 20170814

REACTIONS (1)
  - Altered pitch perception [Recovered/Resolved]

NARRATIVE: CASE EVENT DATE: 20170723
